FAERS Safety Report 4505673-0 (Version None)
Quarter: 2004Q4

REPORT INFORMATION
  Report Type: 
  Country: None (occurrence: None)
  Receive Date: 20041119
  Receipt Date: 20041109
  Transmission Date: 20050328
  Serious: Yes (Life-Threatening, Hospitalization)
  Sender: FDA-Public Use
  Company Number: US-MERCK-0411USA01745

PATIENT
  Age: 62 Year
  Sex: Female

DRUGS (10)
  1. VIOXX [Suspect]
     Indication: ARTHRITIS
     Route: 048
     Dates: start: 19990101, end: 20041001
  2. ASPIRIN [Concomitant]
     Route: 065
  3. NABUMETONE [Concomitant]
     Route: 065
  4. PAXIL [Concomitant]
     Route: 065
  5. NEXIUM [Concomitant]
     Route: 065
  6. NORVASC [Concomitant]
     Route: 065
  7. ALLOPURINOL [Concomitant]
     Route: 065
  8. PLAVIX [Concomitant]
     Route: 065
  9. CRESTOR [Concomitant]
     Route: 065
  10. LEVOXYL [Concomitant]
     Route: 065

REACTIONS (1)
  - MYOCARDIAL INFARCTION [None]
